FAERS Safety Report 10185311 (Version 1)
Quarter: 2014Q2

REPORT INFORMATION
  Report Type: Spontaneous
  Country: US (occurrence: US)
  Receive Date: 20140521
  Receipt Date: 20140521
  Transmission Date: 20141212
  Serious: No
  Sender: FDA-Public Use
  Company Number: US-PFIZER INC-2014135177

PATIENT
  Sex: Female

DRUGS (3)
  1. LYRICA [Suspect]
     Dosage: 100 MG, 3X/DAY
     Dates: start: 201405, end: 201405
  2. LYRICA [Suspect]
     Dosage: 100 MG, 2X/DAY
     Dates: start: 201405, end: 201405
  3. FENTANYL [Suspect]
     Dosage: UNK

REACTIONS (3)
  - Arthralgia [Unknown]
  - Sedation [Unknown]
  - Photopsia [Not Recovered/Not Resolved]
